FAERS Safety Report 11630981 (Version 1)
Quarter: 2015Q4

REPORT INFORMATION
  Report Type: Spontaneous
  Country: US (occurrence: US)
  Receive Date: 20151014
  Receipt Date: 20151014
  Transmission Date: 20160304
  Serious: Yes (Other)
  Sender: FDA-Public Use
  Company Number: US-ABBVIE-14P-163-1271641-00

PATIENT
  Sex: Female

DRUGS (3)
  1. TRICOR [Suspect]
     Active Substance: FENOFIBRATE
  2. SIMVASTIN [Concomitant]
     Active Substance: SIMVASTATIN
     Indication: PRODUCT USED FOR UNKNOWN INDICATION
  3. TRICOR [Suspect]
     Active Substance: FENOFIBRATE
     Indication: CEREBROVASCULAR ACCIDENT
     Dates: start: 201310

REACTIONS (2)
  - Transient ischaemic attack [Not Recovered/Not Resolved]
  - Inappropriate schedule of drug administration [Unknown]

NARRATIVE: CASE EVENT DATE: 2014
